FAERS Safety Report 9914244 (Version 1)
Quarter: 2014Q1

REPORT INFORMATION
  Report Type: Spontaneous
  Country: GB (occurrence: None)
  Receive Date: 20140218
  Receipt Date: 20140218
  Transmission Date: 20141002
  Serious: Yes (Disabling, Other)
  Sender: FDA-Public Use
  Company Number: 2014AP001210

PATIENT
  Age: 66 Year
  Sex: Female

DRUGS (4)
  1. ALENDRONATE [Suspect]
     Indication: BONE DENSITY DECREASED
     Route: 048
     Dates: start: 20090610, end: 20131027
  2. METRONIDAZOLE (METRONIDAZONE) [Concomitant]
  3. PROZAC (FLUOXETINE HYDROCHLORIDE) [Concomitant]
  4. ARIMIDEX (ANASTROZOLE) [Concomitant]

REACTIONS (5)
  - Diarrhoea [None]
  - Lethargy [None]
  - Nausea [None]
  - Hypersomnia [None]
  - Abdominal pain upper [None]
